FAERS Safety Report 9287263 (Version 2)
Quarter: 2013Q2

REPORT INFORMATION
  Report Type: Spontaneous
  Country: JP (occurrence: JP)
  Receive Date: 20130513
  Receipt Date: 20130517
  Transmission Date: 20140414
  Serious: Yes (Disabling, Other)
  Sender: FDA-Public Use
  Company Number: JP-B.I. PHARMACEUTICALS,INC./RIDGEFIELD-2013-BI-12970NB

PATIENT
  Age: 81 Year
  Sex: Female
  Weight: 38.4 kg

DRUGS (4)
  1. PRAZAXA [Suspect]
     Indication: ATRIAL FIBRILLATION
     Dosage: 220 MG
     Route: 048
     Dates: start: 20130408, end: 20130501
  2. FIRSTCIN [Concomitant]
     Indication: INFECTION
     Dosage: 2 G
     Route: 042
     Dates: start: 20130408, end: 20130418
  3. FLAGYL [Concomitant]
     Indication: CLOSTRIDIUM DIFFICILE COLITIS
     Dosage: 1500 MG
     Route: 048
     Dates: start: 20130411, end: 20130424
  4. PREDNISOLONE [Concomitant]
     Indication: LYMPHOMA
     Dosage: 5 MG
     Route: 048
     Dates: start: 201009, end: 20130423

REACTIONS (2)
  - White blood cell count decreased [Recovered/Resolved]
  - Neutrophil count decreased [Recovered/Resolved]
